FAERS Safety Report 16155006 (Version 1)
Quarter: 2019Q2

REPORT INFORMATION
  Report Type: Spontaneous
  Country: KR (occurrence: KR)
  Receive Date: 20190403
  Receipt Date: 20190403
  Transmission Date: 20190711
  Serious: Yes (Other)
  Sender: FDA-Public Use
  Company Number: KR-GLAXOSMITHKLINE-KR2019GSK058337

PATIENT
  Sex: Male

DRUGS (1)
  1. NICOTINELL [Suspect]
     Active Substance: NICOTINE
     Indication: SMOKING CESSATION THERAPY
     Dosage: UNK

REACTIONS (8)
  - Feeling abnormal [Recovered/Resolved]
  - Cardiac discomfort [Recovered/Resolved]
  - Urine abnormality [Recovered/Resolved]
  - Expired product administered [Unknown]
  - Tinnitus [Recovered/Resolved]
  - Dizziness [Recovered/Resolved]
  - Therapeutic response unexpected [Unknown]
  - Angina pectoris [Recovered/Resolved]

NARRATIVE: CASE EVENT DATE: 20190328
